FAERS Safety Report 22644721 (Version 1)
Quarter: 2023Q2

REPORT INFORMATION
  Report Type: Spontaneous
  Country: US (occurrence: US)
  Receive Date: 20230627
  Receipt Date: 20230627
  Transmission Date: 20230722
  Serious: No
  Sender: FDA-Public Use
  Company Number: US-PFIZER INC-PV202300109227

PATIENT
  Age: 6 Year
  Sex: Female

DRUGS (2)
  1. GENOTROPIN [Suspect]
     Active Substance: SOMATROPIN
     Dosage: 1.0 MG, ALTERNATE DAY (INJECT 1 MG ONE DAY AND 1.2 MG NEXT DAY TO AVERAGE 1.1 MG 30 DAY)
  2. GENOTROPIN [Suspect]
     Active Substance: SOMATROPIN
     Dosage: 1.2 MG, ALTERNATE DAY (INJECT 1 MG ONE DAY AND 1.2 MG NEXT DAY TO AVERAGE 1.1 MG 30 DAY)

REACTIONS (1)
  - Device breakage [Unknown]
